FAERS Safety Report 4634323-8 (Version None)
Quarter: 2005Q2

REPORT INFORMATION
  Report Type: 
  Country: None (occurrence: None)
  Receive Date: 20050413
  Receipt Date: 20050411
  Transmission Date: 20051028
  Serious: Yes (Hospitalization)
  Sender: FDA-Public Use
  Company Number: ATT001

PATIENT
  Age: 84 Year
  Sex: Male
  Weight: 77.1115 kg

DRUGS (5)
  1. VIAGRA [Suspect]
     Indication: ANGIOPATHY
     Dosage: 25.00 MG TOTAL; ORAL
     Route: 048
     Dates: start: 20050101, end: 20050101
  2. FUROSEMIDE [Concomitant]
  3. PRILOSEC [Concomitant]
  4. ZOLOFT [Concomitant]
  5. ARICEPT [Concomitant]

REACTIONS (1)
  - NAUSEA [None]
